FAERS Safety Report 17232060 (Version 2)
Quarter: 2020Q1

REPORT INFORMATION
  Report Type: Spontaneous
  Country: FR (occurrence: FR)
  Receive Date: 20200103
  Receipt Date: 20200129
  Transmission Date: 20200409
  Serious: Yes (Other)
  Sender: FDA-Public Use
  Company Number: FR-PFIZER INC-2019562767

PATIENT
  Age: 86 Year
  Sex: Male
  Weight: 71 kg

DRUGS (6)
  1. FENOFIBRATE. [Concomitant]
     Active Substance: FENOFIBRATE
     Indication: BLOOD CHOLESTEROL
     Dosage: 160 MG, 1X/DAY
     Route: 048
  2. PERINDOPRIL [Concomitant]
     Active Substance: PERINDOPRIL
     Indication: HYPERTENSION
     Dosage: 2 MG, 1X/DAY
  3. VYNDAQEL [Suspect]
     Active Substance: TAFAMIDIS MEGLUMINE
     Indication: CARDIAC AMYLOIDOSIS
     Dosage: 20 MG, DAILY
     Route: 048
     Dates: start: 20190409, end: 201905
  4. VYNDAQEL [Suspect]
     Active Substance: TAFAMIDIS MEGLUMINE
     Dosage: 20 MG, DAILY
     Dates: start: 20191119
  5. ELIQUIS [Concomitant]
     Active Substance: APIXABAN
     Indication: ANTICOAGULANT THERAPY
     Dosage: 5 MG, 2X/DAY
     Route: 048
  6. FUROSEMIDE. [Concomitant]
     Active Substance: FUROSEMIDE
     Indication: CARDIAC FAILURE
     Dosage: 40 MG, 1X/DAY
     Route: 048

REACTIONS (4)
  - Functional gastrointestinal disorder [Recovering/Resolving]
  - Off label use [Unknown]
  - Product use in unapproved indication [Unknown]
  - Cardiac failure [Unknown]

NARRATIVE: CASE EVENT DATE: 20190409
